FAERS Safety Report 16365778 (Version 2)
Quarter: 2019Q2

REPORT INFORMATION
  Report Type: Spontaneous
  Country: US (occurrence: US)
  Receive Date: 20190529
  Receipt Date: 20190626
  Transmission Date: 20190711
  Serious: No
  Sender: FDA-Public Use
  Company Number: US-ALKERMES INC.-ALK-2019-002777

PATIENT
  Age: 55 Year
  Sex: Female

DRUGS (1)
  1. VIVITROL [Suspect]
     Active Substance: NALTREXONE
     Indication: INTENTIONAL SELF-INJURY
     Dosage: 380 MG, QMO
     Route: 030
     Dates: start: 20190306

REACTIONS (3)
  - Off label use [Not Recovered/Not Resolved]
  - Therapeutic response shortened [Unknown]
  - Self-injurious ideation [Unknown]

NARRATIVE: CASE EVENT DATE: 201903
